FAERS Safety Report 6788448-1 (Version None)
Quarter: 2010Q2

REPORT INFORMATION
  Report Type: 
  Country: None (occurrence: None)
  Receive Date: 20100623
  Receipt Date: 20080313
  Transmission Date: 20101027
  Serious: No
  Sender: FDA-Public Use
  Company Number: US-PFIZER INC-2008023952

PATIENT
  Sex: Female

DRUGS (2)
  1. GEODON [Suspect]
     Route: 030
  2. RISPERDAL [Concomitant]

REACTIONS (2)
  - AGGRESSION [None]
  - AGITATION [None]
